FAERS Safety Report 12107269 (Version 1)
Quarter: 2016Q1

REPORT INFORMATION
  Report Type: Spontaneous
  Country: US (occurrence: US)
  Receive Date: 20160223
  Receipt Date: 20160223
  Transmission Date: 20160526
  Serious: No
  Sender: FDA-Public Use
  Company Number: US-009507513-1602USA008410

PATIENT

DRUGS (4)
  1. XALATAN [Concomitant]
     Active Substance: LATANOPROST
     Indication: ATRIAL FIBRILLATION
     Dosage: 20 MG, QD
  2. BELSOMRA [Suspect]
     Active Substance: SUVOREXANT
     Indication: INSOMNIA
     Dosage: 5MG AS DIRECTED ON TWO SUCCESSIVE NIGHTS
     Route: 048
  3. AMLODIPINE [Concomitant]
     Active Substance: AMLODIPINE BESYLATE
     Indication: ATRIAL FIBRILLATION
     Dosage: 2.5 MG, QD
  4. COREG [Concomitant]
     Active Substance: CARVEDILOL
     Indication: ATRIAL FIBRILLATION
     Dosage: 10 MG, QD

REACTIONS (4)
  - Nightmare [Unknown]
  - Drug ineffective [Unknown]
  - Headache [Unknown]
  - Dizziness [Unknown]
